FAERS Safety Report 23639199 (Version 1)
Quarter: 2024Q1

REPORT INFORMATION
  Report Type: Spontaneous
  Country: IT (occurrence: IT)
  Receive Date: 20240315
  Receipt Date: 20240315
  Transmission Date: 20240410
  Serious: Yes (Other)
  Sender: FDA-Public Use
  Company Number: IT-MINISAL02-973824

PATIENT
  Age: 93 Year
  Sex: Female

DRUGS (7)
  1. LORAZEPAM [Suspect]
     Active Substance: LORAZEPAM
     Indication: Sedation
     Dosage: 0.25 MILLIGRAM, ONCE A DAY, OFFICIALLY ASSIGNED THERAPY START DATE
     Route: 048
     Dates: start: 20230101
  2. FUROSEMIDE [Concomitant]
     Active Substance: FUROSEMIDE
     Indication: Product used for unknown indication
     Dosage: 75 MILLIGRAM, START OF TP OFFICIAL ALLOCATIONDOSE: 25MG 2CP 8AM + 1CP 4PM
     Route: 065
  3. CANRENOATE POTASSIUM [Concomitant]
     Active Substance: CANRENOATE POTASSIUM
     Indication: Product used for unknown indication
     Dosage: 12.5 MILLIGRAM,  START TP OFFICE ASSIGNMENT 1/2 25 MG TABLET EVERY EVERY DAY
     Route: 048
  4. BISOPROLOL FUMARATE [Concomitant]
     Active Substance: BISOPROLOL FUMARATE
     Indication: Product used for unknown indication
     Dosage: 1.25 MILLIGRAM,  START TP ASSIGNMENT OF OFFICE
     Route: 048
  5. NITROGLYCERIN [Concomitant]
     Active Substance: NITROGLYCERIN
     Indication: Product used for unknown indication
     Dosage: 5 MILLIGRAM, START TP OFFICE ASSIGNMENT 5 MG PATCH
     Route: 023
  6. EDOXABAN [Concomitant]
     Active Substance: EDOXABAN
     Indication: Product used for unknown indication
     Dosage: 30 MILLIGRAM, START TP ASSIGNMENT OF OFFICE
     Route: 048
  7. LANSOPRAZOLE [Concomitant]
     Active Substance: LANSOPRAZOLE
     Indication: Product used for unknown indication
     Dosage: 15 MILLIGRAM, START DATE TP ASSIGNMENT OF OFFICE
     Route: 048

REACTIONS (1)
  - Altered state of consciousness [Recovering/Resolving]

NARRATIVE: CASE EVENT DATE: 20231105
